FAERS Safety Report 12692954 (Version 1)
Quarter: 2016Q3

REPORT INFORMATION
  Report Type: Spontaneous
  Country: US (occurrence: None)
  Receive Date: 20160826
  Receipt Date: 20160826
  Transmission Date: 20161109
  Serious: Yes (Hospitalization)
  Sender: FDA-Public Use
  Company Number: None

PATIENT
  Age: 46 Year
  Sex: Female
  Weight: 81.65 kg

DRUGS (1)
  1. NITROFURANTOIN MONOHYDRATE [Suspect]
     Active Substance: NITROFURANTOIN MONOHYDRATE
     Indication: URINARY TRACT INFECTION
     Route: 048
     Dates: start: 20160808, end: 20160811

REACTIONS (10)
  - Dyspnoea [None]
  - Muscle twitching [None]
  - Hypoaesthesia [None]
  - Feeling cold [None]
  - Blood pressure increased [None]
  - Visual impairment [None]
  - Cough [None]
  - Blood pressure inadequately controlled [None]
  - Vomiting [None]
  - Haematochezia [None]

NARRATIVE: CASE EVENT DATE: 20160812
